FAERS Safety Report 9913969 (Version 1)
Quarter: 2014Q1

REPORT INFORMATION
  Report Type: Spontaneous
  Country: US (occurrence: None)
  Receive Date: 20140219
  Receipt Date: 20140219
  Transmission Date: 20141002
  Serious: No
  Sender: FDA-Public Use
  Company Number: None

PATIENT
  Age: 55 Year
  Sex: Male
  Weight: 67.13 kg

DRUGS (2)
  1. NEURONTIN [Suspect]
     Indication: BACK PAIN
     Route: 048
     Dates: start: 20100601
  2. ZOLOFT [Suspect]

REACTIONS (9)
  - Neuralgia [None]
  - Headache [None]
  - Paraesthesia [None]
  - Hypoaesthesia [None]
  - Dyspepsia [None]
  - Depression [None]
  - Constipation [None]
  - Pruritus [None]
  - Fatigue [None]
